FAERS Safety Report 7176947-2 (Version None)
Quarter: 2010Q4

REPORT INFORMATION
  Report Type: 
  Country: None (occurrence: None)
  Receive Date: 20101220
  Receipt Date: 20101213
  Transmission Date: 20110411
  Serious: Yes (Other)
  Sender: FDA-Public Use
  Company Number: DE-PFIZER INC-2010135778

PATIENT
  Age: 55 Year
  Sex: Female
  Weight: 75 kg

DRUGS (12)
  1. BLINDED *NO SUBJECT DRUG [Suspect]
     Indication: OSTEOARTHRITIS
     Dosage: TANEZUMAB/PLACEBO EVERY 8 WEEKS
     Route: 042
     Dates: start: 20100621, end: 20100621
  2. BLINDED *OXYCODONE [Suspect]
     Indication: OSTEOARTHRITIS
     Dosage: TANEZUMAB/PLACEBO EVERY 8 WEEKS
     Route: 042
     Dates: start: 20100621, end: 20100621
  3. PLACEBO [Suspect]
     Indication: OSTEOARTHRITIS
     Dosage: TANEZUMAB/PLACEBO EVERY 8 WEEKS
     Route: 042
     Dates: start: 20100621, end: 20100621
  4. BLINDED PF-04383119 [Suspect]
     Indication: OSTEOARTHRITIS
     Dosage: TANEZUMAB/PLACEBO EVERY 8 WEEKS
     Route: 042
     Dates: start: 20100621, end: 20100621
  5. BLINDED *NO SUBJECT DRUG [Suspect]
     Dosage: OXYCODONE/PLACEBO DAILY
     Route: 048
     Dates: start: 20100621, end: 20100703
  6. BLINDED *OXYCODONE [Suspect]
     Dosage: OXYCODONE/PLACEBO DAILY
     Route: 048
     Dates: start: 20100621, end: 20100703
  7. PLACEBO [Suspect]
     Dosage: OXYCODONE/PLACEBO DAILY
     Route: 048
     Dates: start: 20100621, end: 20100703
  8. BLINDED PF-04383119 [Suspect]
     Dosage: OXYCODONE/PLACEBO DAILY
     Route: 048
     Dates: start: 20100621, end: 20100703
  9. IBUPROFEN [Suspect]
     Indication: OSTEOARTHRITIS
     Dosage: 600 MG, 1X/DAY
     Route: 048
     Dates: start: 20100527, end: 20100610
  10. IBUPROFEN [Suspect]
     Dosage: 600 MG, 1X/DAY
     Route: 048
     Dates: start: 20100704
  11. ARCOXIA [Suspect]
     Indication: OSTEOARTHRITIS
     Dosage: 90 MG, 1X/DAY
     Route: 048
     Dates: start: 20070101, end: 20100610
  12. ARCOXIA [Suspect]
     Dosage: 90 MG, 1X/DAY
     Route: 048
     Dates: start: 20100704

REACTIONS (1)
  - OSTEONECROSIS [None]
